FAERS Safety Report 8908185 (Version 2)
Quarter: 2013Q1

REPORT INFORMATION
  Report Type: Spontaneous
  Country: DE (occurrence: DE)
  Receive Date: 20121114
  Receipt Date: 20130213
  Transmission Date: 20140127
  Serious: Yes (Hospitalization)
  Sender: FDA-Public Use
  Company Number: PHHY2012DE104000

PATIENT
  Age: 73 Year
  Sex: Female
  Weight: 57 kg

DRUGS (5)
  1. EXELON PATCH [Suspect]
     Indication: DEMENTIA
     Dosage: 4.6 MG, UNK
     Route: 062
     Dates: start: 201207, end: 201210
  2. EXELON PATCH [Suspect]
     Dosage: 9.5 MG, UNK
     Route: 062
     Dates: start: 20121010, end: 20121015
  3. PROTHIPENDYL [Concomitant]
     Indication: SLEEP DISORDER
     Dosage: 40 MG DAILY
     Route: 048
     Dates: start: 20121009
  4. PREGABALIN [Concomitant]
     Indication: AGITATION
     Dosage: 75 MG, DAILY
     Route: 048
     Dates: start: 20121010
  5. PREGABALIN [Concomitant]
     Indication: ANXIETY

REACTIONS (9)
  - Skin reaction [Recovered/Resolved]
  - Pruritus [Recovered/Resolved]
  - Erythema [Recovered/Resolved]
  - Condition aggravated [Recovered/Resolved]
  - Skin irritation [Recovered/Resolved]
  - Skin fissures [Recovered/Resolved]
  - Aggression [Unknown]
  - Restlessness [Unknown]
  - Abnormal behaviour [Unknown]
